FAERS Safety Report 11921902 (Version 1)
Quarter: 2016Q1

REPORT INFORMATION
  Report Type: Spontaneous
  Country: US (occurrence: US)
  Receive Date: 20160115
  Receipt Date: 20160115
  Transmission Date: 20160526
  Serious: Yes (Hospitalization)
  Sender: FDA-Public Use
  Company Number: US-PERRIGO-16US000120

PATIENT
  Age: 78 Year
  Sex: Male
  Weight: 65.76 kg

DRUGS (5)
  1. BISMUTH SUBSALICYLATE 17.467 MG/ML 302 [Suspect]
     Active Substance: BISMUTH SUBSALICYLATE
     Dosage: 525MG, FOUR TIMES
     Route: 048
     Dates: start: 20151229, end: 20151229
  2. ANXIOLYTICS [Concomitant]
     Active Substance: UNSPECIFIED INGREDIENT
     Indication: ANXIETY
     Dosage: UNK
     Route: 048
  3. ASPIRIN                            /00002701/ [Concomitant]
     Active Substance: ASPIRIN
     Indication: ROUTINE HEALTH MAINTENANCE
     Dosage: 81 MG, UNK
     Route: 048
  4. BISMUTH SUBSALICYLATE 17.467 MG/ML 302 [Suspect]
     Active Substance: BISMUTH SUBSALICYLATE
     Indication: DIARRHOEA
     Dosage: 525MG, FOUR TIMES
     Route: 048
     Dates: start: 20160105, end: 20160105
  5. LIPID MODIFYING AGENTS [Concomitant]
     Active Substance: UNSPECIFIED INGREDIENT
     Indication: BLOOD CHOLESTEROL INCREASED
     Dosage: UNK
     Route: 065
     Dates: start: 2015

REACTIONS (2)
  - Off label use [Recovered/Resolved]
  - Blood pressure increased [Recovered/Resolved]

NARRATIVE: CASE EVENT DATE: 20151229
